FAERS Safety Report 13868429 (Version 1)
Quarter: 2017Q3

REPORT INFORMATION
  Report Type: Report from Study
  Country: US (occurrence: US)
  Receive Date: 20170815
  Receipt Date: 20170815
  Transmission Date: 20171127
  Serious: No
  Sender: FDA-Public Use
  Company Number: US-AMGEN-USASP2017121862

PATIENT
  Age: 58 Year
  Sex: Female

DRUGS (1)
  1. ENBREL [Suspect]
     Active Substance: ETANERCEPT
     Indication: PSORIATIC ARTHROPATHY
     Dosage: 50 MG, UNK
     Route: 065

REACTIONS (6)
  - Fall [Unknown]
  - Infection [Unknown]
  - Product storage error [Unknown]
  - Foot fracture [Unknown]
  - Injection site pain [Unknown]
  - Injury [Unknown]

NARRATIVE: CASE EVENT DATE: 20170808
